FAERS Safety Report 10160127 (Version 1)
Quarter: 2014Q2

REPORT INFORMATION
  Report Type: Spontaneous
  Country: US (occurrence: US)
  Receive Date: 20140508
  Receipt Date: 20140508
  Transmission Date: 20141212
  Serious: No
  Sender: FDA-Public Use
  Company Number: US-BAYER-2014-066401

PATIENT
  Age: 70 Year
  Sex: Male
  Weight: 163 kg

DRUGS (10)
  1. ALEVE CAPLET [Suspect]
     Dosage: 2 DF, BID
     Route: 048
     Dates: start: 2013, end: 2013
  2. ALEVE CAPLET [Suspect]
     Dosage: 600 MG, UNK
     Dates: start: 2013, end: 2013
  3. ALEVE CAPLET [Suspect]
     Dosage: 4 DF, QD
     Dates: start: 2013, end: 2013
  4. ALEVE CAPLET [Suspect]
     Dosage: 4 DF, ONCE
     Dates: start: 2013, end: 2013
  5. ALEVE CAPLET [Suspect]
     Dosage: 4 DF, BEFORE BED
     Dates: start: 2013, end: 2013
  6. ALEVE CAPLET [Suspect]
     Dosage: 8 DF, QD
     Route: 048
     Dates: start: 2013
  7. METFORMIN [Concomitant]
  8. KLOR-CON [Concomitant]
     Indication: MINERAL SUPPLEMENTATION
  9. VALSARTAN [Concomitant]
     Indication: BLOOD PRESSURE MANAGEMENT
  10. BAYER ASPIRIN REGIMEN ADULT LOW STRENGTH [Concomitant]
     Dosage: UNK UNK, QD

REACTIONS (1)
  - Extra dose administered [None]
